FAERS Safety Report 7838408-4 (Version None)
Quarter: 2011Q4

REPORT INFORMATION
  Report Type: 
  Country: None (occurrence: None)
  Receive Date: 20111024
  Receipt Date: 20111020
  Transmission Date: 20120403
  Serious: Yes (Hospitalization)
  Sender: FDA-Public Use
  Company Number: FR-MERCK-1110FRA00091

PATIENT
  Age: 58 Year
  Sex: Male

DRUGS (7)
  1. ASPIRIN AND CLOPIDOGREL BISULFATE [Concomitant]
     Route: 065
     Dates: end: 20110328
  2. JANUVIA [Suspect]
     Indication: DIABETES MELLITUS
     Route: 048
     Dates: start: 20110301, end: 20110328
  3. PROPRANOLOL HYDROCHLORIDE [Concomitant]
     Route: 065
     Dates: end: 20110328
  4. GLICLAZIDE [Concomitant]
     Route: 065
     Dates: end: 20110328
  5. ACETAMINOPHEN AND TRAMADOL HYDROCHLORIDE [Concomitant]
     Route: 065
     Dates: end: 20110328
  6. ESOMEPRAZOLE MAGNESIUM [Concomitant]
     Route: 065
     Dates: end: 20110328
  7. VYTORIN [Concomitant]
     Route: 065
     Dates: end: 20110328

REACTIONS (3)
  - ANAPHYLACTIC SHOCK [None]
  - URTICARIA [None]
  - BLOOD CREATININE INCREASED [None]
